FAERS Safety Report 18479625 (Version 1)
Quarter: 2020Q4

REPORT INFORMATION
  Report Type: Spontaneous
  Country: JP (occurrence: JP)
  Receive Date: 20201109
  Receipt Date: 20201109
  Transmission Date: 20210114
  Serious: Yes (Hospitalization)
  Sender: FDA-Public Use
  Company Number: JP-MYLANLABS-2020M1092593

PATIENT
  Age: 69 Year
  Sex: Female
  Weight: 31 kg

DRUGS (12)
  1. PREDNISOLONE. [Suspect]
     Active Substance: PREDNISOLONE
     Indication: SYSTEMIC LUPUS ERYTHEMATOSUS
     Dosage: 40 MILLIGRAM, QD
     Route: 042
  2. OCTREOTIDE. [Concomitant]
     Active Substance: OCTREOTIDE
     Dosage: 125 MICROGRAM, QD
     Route: 065
  3. PREDNISOLONE. [Suspect]
     Active Substance: PREDNISOLONE
     Indication: SYSTEMIC LUPUS ERYTHEMATOSUS
     Route: 065
  4. COTRIMOXAZOLE [Suspect]
     Active Substance: SULFAMETHOXAZOLE\TRIMETHOPRIM
     Indication: ANTIBIOTIC PROPHYLAXIS
     Dosage: CONTAINED 80MG OF TRIMETHOPRIM; SCHEDULED FOR ONE YEAR
     Route: 065
  5. OCTREOTIDE. [Concomitant]
     Active Substance: OCTREOTIDE
     Dosage: 175 MICROGRAM, QD
     Route: 065
  6. OCTREOTIDE. [Concomitant]
     Active Substance: OCTREOTIDE
     Dosage: 50 MICROGRAM, QD
     Route: 065
  7. OCTREOTIDE. [Concomitant]
     Active Substance: OCTREOTIDE
     Dosage: 100 MICROGRAM, QD
     Route: 065
  8. OCTREOTIDE. [Concomitant]
     Active Substance: OCTREOTIDE
     Indication: INSULINOMA
     Dosage: 25 MICROGRAM, QD
     Route: 065
  9. PREDNISOLONE. [Suspect]
     Active Substance: PREDNISOLONE
     Indication: SYSTEMIC LUPUS ERYTHEMATOSUS
     Route: 048
  10. OCTREOTIDE. [Concomitant]
     Active Substance: OCTREOTIDE
     Dosage: 75 MICROGRAM, QD
     Route: 065
  11. OCTREOTIDE. [Concomitant]
     Active Substance: OCTREOTIDE
     Dosage: 150 MICROGRAM, QD
     Route: 065
  12. OCTREOTIDE. [Concomitant]
     Active Substance: OCTREOTIDE
     Indication: INSULINOMA
     Dosage: FORMULATION: LONG ACTING RELEASE
     Route: 065

REACTIONS (4)
  - Symptom masked [Recovered/Resolved]
  - Hypoglycaemia [Recovered/Resolved]
  - Hypokalaemia [Unknown]
  - Malnutrition [Unknown]
